FAERS Safety Report 23083374 (Version 3)
Quarter: 2023Q4

REPORT INFORMATION
  Report Type: Report from Study
  Country: CN (occurrence: CN)
  Receive Date: 20231019
  Receipt Date: 20231101
  Transmission Date: 20240109
  Serious: Yes (Hospitalization)
  Sender: FDA-Public Use
  Company Number: CN-ADC THERAPEUTICS SA-ADC-2023-000529

PATIENT
  Age: 61 Year
  Sex: Male
  Weight: 80 kg

DRUGS (4)
  1. LONCASTUXIMAB TESIRINE [Suspect]
     Active Substance: LONCASTUXIMAB TESIRINE
     Indication: Diffuse large B-cell lymphoma
     Dosage: 150 MICROGRAM/KILOGRAM, Q3WK
     Route: 042
     Dates: start: 20230815, end: 20230815
  2. LONCASTUXIMAB TESIRINE [Suspect]
     Active Substance: LONCASTUXIMAB TESIRINE
     Dosage: 150 MICROGRAM/KILOGRAM, Q3WK
     Route: 042
     Dates: start: 20230907, end: 20230907
  3. RITUXIMAB [Suspect]
     Active Substance: RITUXIMAB
     Indication: Diffuse large B-cell lymphoma
     Dosage: 375 MG/M2, Q3WK
     Route: 042
     Dates: start: 20230815, end: 20230815
  4. RITUXIMAB [Suspect]
     Active Substance: RITUXIMAB
     Dosage: 375 MG/M2, Q3WK
     Route: 042
     Dates: start: 20230907, end: 20230907

REACTIONS (1)
  - Blood creatinine increased [Not Recovered/Not Resolved]

NARRATIVE: CASE EVENT DATE: 20231013
